FAERS Safety Report 5051803-4 (Version None)
Quarter: 2006Q3

REPORT INFORMATION
  Report Type: 
  Country: None (occurrence: None)
  Receive Date: 20060713
  Receipt Date: 20060713
  Transmission Date: 20061208
  Serious: Yes (Other)
  Sender: FDA-Public Use
  Company Number: None

PATIENT
  Age: 45 Year
  Sex: Female
  Weight: 127.9 kg

DRUGS (1)
  1. MORPHINE [Suspect]

REACTIONS (2)
  - NAUSEA [None]
  - VOMITING [None]
